FAERS Safety Report 5630372-1 (Version None)
Quarter: 2008Q1

REPORT INFORMATION
  Report Type: 
  Country: None (occurrence: None)
  Receive Date: 20080219
  Receipt Date: 20080214
  Transmission Date: 20080703
  Serious: Yes (Hospitalization, Other)
  Sender: FDA-Public Use
  Company Number: PHNU2008DE00677

PATIENT
  Age: 65 Year
  Sex: Female
  Weight: 90 kg

DRUGS (5)
  1. IMMUNOSPORIN [Suspect]
     Indication: PRURIGO
     Dosage: 200 MG, BID
     Route: 048
     Dates: start: 20060124, end: 20060221
  2. IMMUNOSPORIN [Suspect]
     Dates: end: 20060310
  3. CLEXANE [Concomitant]
     Dosage: 0.8 ML, BID
  4. TENORMIN [Concomitant]
     Dosage: 50 MG, QD
  5. FERRO ^SANOL^ [Concomitant]
     Dosage: 1 DF, BID

REACTIONS (10)
  - ANAEMIA POSTOPERATIVE [None]
  - ARTERIAL OCCLUSIVE DISEASE [None]
  - ASTHMA [None]
  - ATRIAL FIBRILLATION [None]
  - DRUG LEVEL INCREASED [None]
  - FEMORAL ARTERY OCCLUSION [None]
  - HAEMATOMA [None]
  - HYPERTENSION [None]
  - PERIPHERAL EMBOLISM [None]
  - THROMBOEMBOLECTOMY [None]
